FAERS Safety Report 9444930 (Version 1)
Quarter: 2013Q3

REPORT INFORMATION
  Report Type: Spontaneous
  Country: FR (occurrence: FR)
  Receive Date: 20130807
  Receipt Date: 20130807
  Transmission Date: 20140515
  Serious: Yes (Hospitalization, Other)
  Sender: FDA-Public Use
  Company Number: FR-009507513-1307FRA016355

PATIENT
  Age: 62 Year
  Sex: Male

DRUGS (1)
  1. TIENAM 500MG/500MG, POUDRE POUR PERFUSION [Suspect]
     Indication: PSEUDOMONAL SEPSIS
     Dosage: 500 MG, BID
     Route: 048
     Dates: start: 20130522, end: 20130528

REACTIONS (3)
  - Drug reaction with eosinophilia and systemic symptoms [Unknown]
  - Rash [Unknown]
  - Eosinophilia [Unknown]
